FAERS Safety Report 6186708-9 (Version None)
Quarter: 2009Q2

REPORT INFORMATION
  Report Type: 
  Country: None (occurrence: None)
  Receive Date: 20090508
  Receipt Date: 20090429
  Transmission Date: 20091009
  Serious: Yes (Hospitalization)
  Sender: FDA-Public Use
  Company Number: SPV1-2009-00846

PATIENT
  Age: 25 Year
  Sex: Male
  Weight: 50.8 kg

DRUGS (3)
  1. PENTASA [Suspect]
     Indication: CROHN'S DISEASE
     Dosage: 250 MG, 4X/DAY QID, ORAL; 1000 MG, 1X/DAY QD, ORAL; 2000 MG, 1X/DAY QD, ORAL
     Route: 048
     Dates: end: 20081101
  2. PENTASA [Suspect]
     Indication: CROHN'S DISEASE
     Dosage: 250 MG, 4X/DAY QID, ORAL; 1000 MG, 1X/DAY QD, ORAL; 2000 MG, 1X/DAY QD, ORAL
     Route: 048
     Dates: start: 19990101
  3. PENTASA [Suspect]
     Indication: CROHN'S DISEASE
     Dosage: 250 MG, 4X/DAY QID, ORAL; 1000 MG, 1X/DAY QD, ORAL; 2000 MG, 1X/DAY QD, ORAL
     Route: 048
     Dates: start: 20090424

REACTIONS (4)
  - ABDOMINAL ABSCESS [None]
  - ABSCESS RUPTURE [None]
  - DYSURIA [None]
  - PYREXIA [None]
